FAERS Safety Report 25579040 (Version 2)
Quarter: 2025Q3

REPORT INFORMATION
  Report Type: Spontaneous
  Country: EU (occurrence: EU)
  Receive Date: 20250718
  Receipt Date: 20250904
  Transmission Date: 20251021
  Serious: Yes (Other)
  Sender: NOVARTIS
  Company Number: EU-002147023-NVSC2025MT114050

PATIENT
  Age: 37 Year
  Sex: Female

DRUGS (3)
  1. OFATUMUMAB [Suspect]
     Active Substance: OFATUMUMAB
     Indication: Relapsing multiple sclerosis
     Route: 058
  2. OFATUMUMAB [Suspect]
     Active Substance: OFATUMUMAB
     Dosage: 20 MG, Q4W
     Route: 058
     Dates: start: 202503
  3. METFORMIN [Concomitant]
     Active Substance: METFORMIN HYDROCHLORIDE
     Indication: Diabetes mellitus
     Route: 065

REACTIONS (1)
  - Cystoid macular oedema [Unknown]

NARRATIVE: CASE EVENT DATE: 20250713
